APPROVED DRUG PRODUCT: MANNITOL 25%
Active Ingredient: MANNITOL
Strength: 12.5GM/50ML
Dosage Form/Route: INJECTABLE;INJECTION
Application: A083051 | Product #001
Applicant: INTERNATIONAL MEDICATION SYSTEM
Approved: Approved Prior to Jan 1, 1982 | RLD: No | RS: No | Type: DISCN